FAERS Safety Report 9302066 (Version 1)
Quarter: 2013Q2

REPORT INFORMATION
  Report Type: Spontaneous
  Country: US (occurrence: US)
  Receive Date: 20130521
  Receipt Date: 20130521
  Transmission Date: 20140414
  Serious: Yes (Other)
  Sender: FDA-Public Use
  Company Number: US-BAXTER-2013BAX018207

PATIENT
  Age: 24 Year
  Sex: Female

DRUGS (7)
  1. NEXTERONE_AMIODARONE, HYDROCHLORIDE 1.50 MG/ML_SOLUTION FOR INFUSION_B [Suspect]
     Indication: VENTRICULAR TACHYCARDIA
     Route: 042
  2. NEXTERONE_AMIODARONE, HYDROCHLORIDE 1.50 MG/ML_SOLUTION FOR INFUSION_B [Suspect]
  3. BREVIBLOC DOUBLE STRENGTH PREMIXED INJECTION (ESMOLOL HYDROCHLORIDE) [Suspect]
     Indication: VENTRICULAR TACHYCARDIA
     Route: 042
  4. ISOPROTERENOL [Suspect]
     Indication: VENTRICULAR TACHYCARDIA
     Route: 065
  5. MAGNESIUM [Suspect]
     Indication: VENTRICULAR TACHYCARDIA
     Route: 042
  6. CILOSTAZOL [Suspect]
     Indication: VENTRICULAR TACHYCARDIA
     Route: 065
  7. QUINIDINE GLUCONATE CR [Suspect]
     Indication: VENTRICULAR TACHYCARDIA
     Route: 065

REACTIONS (3)
  - Drug ineffective [Recovered/Resolved]
  - Exposure during pregnancy [Recovered/Resolved]
  - Premature delivery [Recovered/Resolved]
